FAERS Safety Report 5136025-0 (Version None)
Quarter: 2006Q4

REPORT INFORMATION
  Report Type: 
  Country: None (occurrence: None)
  Receive Date: 20061020
  Receipt Date: 20061006
  Transmission Date: 20070319
  Serious: Yes (Hospitalization, Other)
  Sender: FDA-Public Use
  Company Number: 2006BL005881

PATIENT
  Age: 43 Year
  Sex: Male

DRUGS (9)
  1. MINIMS PREDNISOLONE SODIUM PHOSPHATE [Suspect]
     Indication: BURKITT'S LYMPHOMA
     Dosage: CYCLICAL
  2. HYDROCORTISONE [Suspect]
     Indication: BURKITT'S LYMPHOMA
     Dosage: CYCLICAL
  3. CYCLOPHOSPHAMIDE [Concomitant]
  4. CYTOSINE ARABINOSIDE [Concomitant]
  5. DOXORUBICIN HCL [Concomitant]
  6. METHOTREXATE [Concomitant]
  7. RITONAVIR [Concomitant]
  8. SAQUINAVIR [Concomitant]
  9. VINCRISTINE [Concomitant]

REACTIONS (7)
  - BLOOD CHOLESTEROL INCREASED [None]
  - BLOOD TRIGLYCERIDES INCREASED [None]
  - OSTEONECROSIS [None]
  - OSTEOPOROSIS [None]
  - REFUSAL OF TREATMENT BY PATIENT [None]
  - SPINAL COMPRESSION FRACTURE [None]
  - VIRAL LOAD INCREASED [None]
